FAERS Safety Report 19421663 (Version 1)
Quarter: 2021Q2

REPORT INFORMATION
  Report Type: Spontaneous
  Country: GB (occurrence: GB)
  Receive Date: 20210616
  Receipt Date: 20210616
  Transmission Date: 20210717
  Serious: Yes (Other)
  Sender: FDA-Public Use
  Company Number: GB-SA-2021SA192543

PATIENT
  Age: 54 Year
  Sex: Male

DRUGS (169)
  1. AMOXICILLIN. [Suspect]
     Active Substance: AMOXICILLIN
     Dosage: UNK
     Route: 065
  2. AMOXICILLIN. [Suspect]
     Active Substance: AMOXICILLIN
     Dosage: 250 MILLIGRAM(S)
     Route: 048
  3. AMOXICILLIN. [Suspect]
     Active Substance: AMOXICILLIN
     Dosage: 3 G, 1X/DAY
     Route: 042
  4. FUROSEMIDE. [Suspect]
     Active Substance: FUROSEMIDE
     Dosage: 20 MG, 1X/DAY
     Route: 048
  5. HEPARIN CALCIUM [Suspect]
     Active Substance: HEPARIN CALCIUM
     Dosage: UNK
  6. HEPARIN SODIUM. [Suspect]
     Active Substance: HEPARIN SODIUM
     Indication: PRODUCT USED FOR UNKNOWN INDICATION
     Dosage: 3500 MICROGRAM, QD
     Route: 065
  7. POTASSIUM CHLORIDE. [Suspect]
     Active Substance: POTASSIUM CHLORIDE
     Indication: PNEUMONIA
     Dosage: 2 DF, QD
  8. SODIUM CHLORIDE. [Suspect]
     Active Substance: SODIUM CHLORIDE
     Dosage: 0.9 PER CENT SOLUTION
     Dates: start: 2006
  9. TRICLOSAN. [Suspect]
     Active Substance: TRICLOSAN
     Dosage: UNK
     Route: 065
  10. SULFADIAZINE. [Suspect]
     Active Substance: SULFADIAZINE
     Indication: ILL-DEFINED DISORDER
     Dosage: UNK
     Route: 061
  11. BACTROBAN [Suspect]
     Active Substance: MUPIROCIN\MUPIROCIN CALCIUM
     Indication: ILL-DEFINED DISORDER
     Dosage: 10ML/50% 8MMOLS/50MLS
     Route: 065
     Dates: start: 2006
  12. FLAMAZINE [Suspect]
     Active Substance: SILVER SULFADIAZINE
     Indication: ILL-DEFINED DISORDER
     Dosage: UNK
     Route: 065
     Dates: start: 2006
  13. AQUASEPT [Suspect]
     Active Substance: TRICLOSAN
     Indication: ILL-DEFINED DISORDER
     Dosage: UNK
     Route: 065
     Dates: start: 2006
  14. HUMAN ACTRAPID [Suspect]
     Active Substance: INSULIN HUMAN
     Indication: PNEUMONIA
     Dosage: UNK
     Route: 042
  15. HUMAN ACTRAPID [Suspect]
     Active Substance: INSULIN HUMAN
     Dosage: UNK
     Route: 042
     Dates: start: 2006
  16. MAGNESIUM SULPHATE [MAGNESIUM SULFATE] [Suspect]
     Active Substance: MAGNESIUM SULFATE
     Indication: PNEUMONIA
     Dosage: UNK
     Route: 065
  17. SANDO K [POTASSIUM BICARBONATE;POTASSIUM CHLORIDE] [Suspect]
     Active Substance: POTASSIUM BICARBONATE\POTASSIUM CHLORIDE
     Dosage: UNK UNK, TID
     Route: 065
  18. SANDO K [POTASSIUM BICARBONATE;POTASSIUM CHLORIDE] [Suspect]
     Active Substance: POTASSIUM BICARBONATE\POTASSIUM CHLORIDE
     Dosage: 2 DF, QD
  19. TINZAPARIN [Suspect]
     Active Substance: TINZAPARIN
     Indication: ILL-DEFINED DISORDER
     Dosage: 3500 MICROLITER, QD
     Route: 065
  20. TAZOCIN [Concomitant]
     Active Substance: PIPERACILLIN SODIUM\TAZOBACTAM SODIUM
     Dosage: INCREASED TO 4 TIMES DAILY BETWEEN 04/10/2006 AND 09/10/2006
     Route: 042
  21. CLEXANE [Suspect]
     Active Substance: ENOXAPARIN SODIUM
     Indication: ILL-DEFINED DISORDER
     Dosage: 20 MG, QD
  22. CALCIUM GLUCONATE. [Suspect]
     Active Substance: CALCIUM GLUCONATE
     Indication: ILL-DEFINED DISORDER
     Dosage: 10 ML
     Route: 042
     Dates: start: 2006
  23. CALCIUM GLUCONATE. [Suspect]
     Active Substance: CALCIUM GLUCONATE
     Indication: PNEUMONIA
     Dosage: 40 MG
  24. LANSOPRAZOLE. [Suspect]
     Active Substance: LANSOPRAZOLE
     Indication: PNEUMONIA
     Dosage: 30 MG, QD
  25. LORAZEPAM. [Suspect]
     Active Substance: LORAZEPAM
     Dosage: 1?2MG ONCE ONLY
     Route: 065
  26. MUPIROCIN. [Suspect]
     Active Substance: MUPIROCIN
     Indication: PNEUMONIA
     Dosage: UNK
     Dates: start: 2006
  27. POTASSIUM CHLORIDE. [Suspect]
     Active Substance: POTASSIUM CHLORIDE
     Dosage: 2 DF, TID
     Dates: start: 2006
  28. SIMVASTATIN. [Suspect]
     Active Substance: SIMVASTATIN
     Indication: PNEUMONIA
     Dosage: 40 MILLIGRAM, QD
     Route: 042
     Dates: start: 2006
  29. TRICLOSAN. [Suspect]
     Active Substance: TRICLOSAN
     Dosage: UNK
  30. PIRITON [Suspect]
     Active Substance: CHLORPHENIRAMINE MALEATE
     Dosage: 10 MG, QID
     Route: 042
     Dates: start: 2006
  31. ALFENTANIL. [Suspect]
     Active Substance: ALFENTANIL
     Dosage: DAILY DOSE: UNKNOWN
     Route: 042
     Dates: start: 2006
  32. BACTROBAN [Suspect]
     Active Substance: MUPIROCIN\MUPIROCIN CALCIUM
     Dosage: UNK
     Route: 065
  33. CALCIUM CHLORIDE. [Suspect]
     Active Substance: CALCIUM CHLORIDE
     Indication: ILL-DEFINED DISORDER
     Dosage: DAILY DOSE: UNKNOWN
     Route: 065
     Dates: start: 2006
  34. ENOXAPARIN [Suspect]
     Active Substance: ENOXAPARIN
     Indication: PRODUCT USED FOR UNKNOWN INDICATION
     Dosage: 20 MILLIGRAM, QD
     Route: 065
  35. FRAGMIN [Suspect]
     Active Substance: DALTEPARIN SODIUM
     Dosage: 2500 IU, QD
     Route: 058
  36. FLAMAZINE [Suspect]
     Active Substance: SILVER SULFADIAZINE
     Dosage: UNK
     Route: 061
  37. THIAMINE. [Suspect]
     Active Substance: THIAMINE
     Indication: ILL-DEFINED DISORDER
     Dosage: 100 MILLIGRAM, QD
     Route: 042
     Dates: start: 2006
  38. ERYTHROMYCIN. [Concomitant]
     Active Substance: ERYTHROMYCIN
     Indication: ILL-DEFINED DISORDER
     Dosage: DAILY DOSE: 250 MILLIGRAM(S)
     Route: 065
  39. MIDODRINE [Concomitant]
     Active Substance: MIDODRINE
     Indication: ILL-DEFINED DISORDER
     Dosage: DAILY DOSE: UNKNOWN
     Route: 048
  40. TAZOCIN [Concomitant]
     Active Substance: PIPERACILLIN SODIUM\TAZOBACTAM SODIUM
     Dosage: INCREASED TO 4 TIMES DAILY BETWEEN 04/10/2006 AND 09/10/2006
     Route: 042
  41. FUROSEMIDE. [Suspect]
     Active Substance: FUROSEMIDE
     Indication: ILL-DEFINED DISORDER
     Dosage: 20 MILLIGRAM, BID
     Route: 042
  42. LANSOPRAZOLE. [Suspect]
     Active Substance: LANSOPRAZOLE
     Dosage: 3 GRAM
     Route: 065
  43. PARACETAMOL [Suspect]
     Active Substance: ACETAMINOPHEN
     Dosage: UNK
  44. PHYTOMENADIONE [Suspect]
     Active Substance: PHYTONADIONE
     Indication: ILL-DEFINED DISORDER
     Dosage: UNK
     Route: 065
     Dates: start: 2006
  45. SODIUM CHLORIDE. [Suspect]
     Active Substance: SODIUM CHLORIDE
     Indication: ILL-DEFINED DISORDER
     Dosage: 0.9 %
  46. TRICLOSAN. [Suspect]
     Active Substance: TRICLOSAN
     Indication: PRODUCT USED FOR UNKNOWN INDICATION
     Dosage: UNK
     Dates: start: 2006
  47. PIRITON [Suspect]
     Active Substance: CHLORPHENIRAMINE MALEATE
     Indication: PNEUMONIA
     Dosage: 10 MG, Q6H
     Route: 042
     Dates: start: 2006
  48. CHLORPHENIRAMINE MALEATE. [Suspect]
     Active Substance: CHLORPHENIRAMINE MALEATE
     Indication: PNEUMONIA
     Dosage: 10 MG, QID
     Route: 042
  49. FLAMAZINE [Suspect]
     Active Substance: SILVER SULFADIAZINE
     Dosage: UNK
     Route: 061
     Dates: start: 2006
  50. AQUASEPT [Suspect]
     Active Substance: TRICLOSAN
     Dosage: UNK
     Route: 065
     Dates: start: 2006
  51. MAGNESIUM SULPHATE [MAGNESIUM SULFATE] [Suspect]
     Active Substance: MAGNESIUM SULFATE
     Indication: ILL-DEFINED DISORDER
     Dosage: 10ML/50% 8MMOLS/50MLS
     Route: 065
     Dates: start: 2006
  52. MAGNESIUM SULPHATE [Suspect]
     Active Substance: MAGNESIUM SULFATE
     Dosage: 10ML/50% 8MMOLS/50MLS
     Route: 061
     Dates: start: 2006
  53. NORADRENALINE (NORPINEPHRINE) [Suspect]
     Active Substance: NOREPINEPHRINE
     Indication: PNEUMONIA
     Dosage: UNK
     Route: 065
  54. SANDO K [POTASSIUM BICARBONATE;POTASSIUM CHLORIDE] [Suspect]
     Active Substance: POTASSIUM BICARBONATE\POTASSIUM CHLORIDE
     Indication: ILL-DEFINED DISORDER
     Dosage: (DAILY DOSE TEXT: 2 DL 3/1DAYS)
  55. VITAMIN K [Suspect]
     Active Substance: PHYTONADIONE
     Dosage: 10 MG, QID
     Route: 042
  56. ACETYLSALICYLIC ACID [Concomitant]
     Active Substance: ASPIRIN
     Dosage: UNK
     Route: 065
  57. CIPROFLOXACIN. [Concomitant]
     Active Substance: CIPROFLOXACIN
     Dosage: 400 MG, QD
     Route: 042
  58. CO AMOXYCLAV [AMOXICILLIN;CLAVULANIC ACID] [Concomitant]
     Dosage: 375 MILLIGRAM, TID
     Route: 065
     Dates: start: 20060913
  59. TAZOCIN [Concomitant]
     Active Substance: PIPERACILLIN SODIUM\TAZOBACTAM SODIUM
     Dosage: 4.5 MILLIGRAM, QD (INCREASED TO 4 TIMES DAILY BETWEEN 04/10/2006 AND 09/10/2006)
     Route: 042
     Dates: start: 2006
  60. VANCOMYCIN [Concomitant]
     Active Substance: VANCOMYCIN
     Dosage: 1 G, QD
  61. AMOXICILLIN. [Suspect]
     Active Substance: AMOXICILLIN
     Dosage: 1 G, TID
     Route: 042
  62. FLUCONAZOLE. [Suspect]
     Active Substance: FLUCONAZOLE
     Dosage: 200 MILLIGRAM, QD
     Route: 042
     Dates: start: 2006
  63. LANSOPRAZOLE. [Suspect]
     Active Substance: LANSOPRAZOLE
     Indication: ILL-DEFINED DISORDER
     Dosage: DAILY DOSE: 30 MILLIGRAM(S)
     Route: 065
     Dates: start: 2006
  64. LACTULOSE. [Suspect]
     Active Substance: LACTULOSE
     Indication: ILL-DEFINED DISORDER
     Dosage: 10 MILLILITRE(S)
     Route: 065
     Dates: start: 2006
  65. HYDROCORTISONE. [Suspect]
     Active Substance: HYDROCORTISONE
     Dosage: 100 MILLIGRAM
     Route: 065
  66. LORAZEPAM. [Suspect]
     Active Substance: LORAZEPAM
     Indication: ILL-DEFINED DISORDER
     Dosage: 1?2MG ONCE ONLY
     Route: 065
     Dates: start: 2006
  67. PARACETAMOL [Suspect]
     Active Substance: ACETAMINOPHEN
     Dosage: UNK
     Route: 065
     Dates: start: 2006
  68. SODIUM BICARBONATE. [Suspect]
     Active Substance: SODIUM BICARBONATE
     Indication: PNEUMONIA
     Dosage: 100 MG,BIWEEKLY
     Route: 042
  69. SIMVASTATIN. [Suspect]
     Active Substance: SIMVASTATIN
     Dosage: 40 MG,QD (DAILY DOSE: 40 MILLIGRAM(S))
     Route: 042
     Dates: start: 2006
  70. PIRITON [Suspect]
     Active Substance: CHLORPHENIRAMINE MALEATE
     Indication: ILL-DEFINED DISORDER
     Dosage: 10 MG
  71. PIRITON [Suspect]
     Active Substance: CHLORPHENIRAMINE MALEATE
     Dosage: 10 MG, QID
     Route: 042
  72. SALBUTAMOL [Suspect]
     Active Substance: ALBUTEROL
     Dosage: 1 DF, PRN
  73. SALBUTAMOL [Suspect]
     Active Substance: ALBUTEROL
     Dosage: UNK UNK, PRN
     Route: 065
     Dates: start: 2006
  74. FRAGMIN [Suspect]
     Active Substance: DALTEPARIN SODIUM
     Indication: PNEUMONIA
     Dosage: 2500 IU, QD
     Route: 058
     Dates: start: 2006
  75. SILVER SULPHADIAZINE [Suspect]
     Active Substance: SILVER SULFADIAZINE
     Indication: ILL-DEFINED DISORDER
     Dosage: UNK
     Route: 061
     Dates: start: 2006
  76. ROCEPHIN [Suspect]
     Active Substance: CEFTRIAXONE SODIUM
     Indication: ILL-DEFINED DISORDER
     Dosage: DAILY DOSE TEXT: 2 G
     Route: 042
     Dates: start: 2006
  77. SANDO K [POTASSIUM BICARBONATE;POTASSIUM CHLORIDE] [Suspect]
     Active Substance: POTASSIUM BICARBONATE\POTASSIUM CHLORIDE
     Indication: PRODUCT USED FOR UNKNOWN INDICATION
     Dosage: (DAILY DOSE TEXT: 2 DL 3/1DAYS)
     Route: 065
  78. SODIUM HYDROGEN CARBONATE [Suspect]
     Active Substance: SODIUM BICARBONATE
     Indication: ILL-DEFINED DISORDER
     Dosage: ADMINISTRATION OVER AN HOUR. 100ML/HR
     Route: 042
     Dates: start: 2006
  79. VITAMIN K [Suspect]
     Active Substance: PHYTONADIONE
     Indication: PNEUMONIA
     Dosage: UNK
     Route: 065
  80. VITAMIN K [Suspect]
     Active Substance: PHYTONADIONE
     Indication: ILL-DEFINED DISORDER
     Dosage: UNK
     Route: 065
     Dates: start: 2006
  81. ATROVENT [Concomitant]
     Active Substance: IPRATROPIUM BROMIDE
     Dosage: UNK
  82. TAZOCIN [Concomitant]
     Active Substance: PIPERACILLIN SODIUM\TAZOBACTAM SODIUM
     Dosage: 4.5 G (INCREASED TO 4 TIMES DAILY)
     Dates: start: 20061004, end: 20061009
  83. DOBUTAMINE [Suspect]
     Active Substance: DOBUTAMINE HYDROCHLORIDE
     Dosage: UNK
     Route: 065
     Dates: start: 2006
  84. FUROSEMIDE. [Suspect]
     Active Substance: FUROSEMIDE
     Dosage: 20 MILLIGRAM, BID
     Route: 042
     Dates: start: 2006
  85. HYDROCORTISONE. [Suspect]
     Active Substance: HYDROCORTISONE
     Dosage: 100 MILLIGRAM, QD
     Route: 048
     Dates: start: 2006
  86. LORAZEPAM. [Suspect]
     Active Substance: LORAZEPAM
     Indication: PNEUMONIA
     Dosage: UNK
     Route: 065
  87. NOREPINEPHRINE. [Suspect]
     Active Substance: NOREPINEPHRINE
     Indication: ILL-DEFINED DISORDER
     Dosage: UNK
     Route: 065
  88. PHYTOMENADIONE [Suspect]
     Active Substance: PHYTONADIONE
     Dosage: UNK
  89. OMEPRAZOLE. [Suspect]
     Active Substance: OMEPRAZOLE
     Indication: ILL-DEFINED DISORDER
     Dosage: DAILY DOSE: 40 MILLIGRAM(S)
     Route: 042
     Dates: start: 2006
  90. PIRITON [Suspect]
     Active Substance: CHLORPHENIRAMINE MALEATE
     Dosage: 10 MG, QID
     Route: 042
     Dates: start: 2006
  91. ALFENTANIL. [Suspect]
     Active Substance: ALFENTANIL
     Indication: ILL-DEFINED DISORDER
     Dosage: UNK
     Route: 042
  92. SALBUTAMOL [Suspect]
     Active Substance: ALBUTEROL
     Indication: ILL-DEFINED DISORDER
     Dosage: 100 MG, QD
     Route: 065
     Dates: start: 2006
  93. BACTROBAN [Suspect]
     Active Substance: MUPIROCIN\MUPIROCIN CALCIUM
     Indication: PNEUMONIA
     Dosage: UNK
     Route: 065
     Dates: start: 2006
  94. FRAGMIN [Suspect]
     Active Substance: DALTEPARIN SODIUM
     Dosage: 200 IU, QD
     Route: 058
     Dates: start: 2006
  95. POTASSIUM PHOSPHATE [POTASSIUM PHOSPHATE DIBASIC] [Suspect]
     Active Substance: DIBASIC POTASSIUM PHOSPHATE
     Indication: PNEUMONIA
     Dosage: UNK
     Route: 065
  96. SANDO K [POTASSIUM BICARBONATE;POTASSIUM CHLORIDE] [Suspect]
     Active Substance: POTASSIUM BICARBONATE\POTASSIUM CHLORIDE
     Dosage: 2 DF, TID
     Route: 061
     Dates: start: 2006
  97. SANDO K [POTASSIUM BICARBONATE;POTASSIUM CHLORIDE] [Suspect]
     Active Substance: POTASSIUM BICARBONATE\POTASSIUM CHLORIDE
     Dosage: DAILY DOSE TEXT: 2 DL 3/1DAYS
     Route: 065
  98. SANDO K [POTASSIUM BICARBONATE;POTASSIUM CHLORIDE] [Suspect]
     Active Substance: POTASSIUM BICARBONATE\POTASSIUM CHLORIDE
     Dosage: 6 DOSAGE FORM, QD
     Route: 065
  99. ATROVENT [Concomitant]
     Active Substance: IPRATROPIUM BROMIDE
     Indication: ILL-DEFINED DISORDER
     Dosage: UNK, PRN
     Route: 048
  100. IPRATROPIUM BROMIDE. [Concomitant]
     Active Substance: IPRATROPIUM BROMIDE
     Dosage: UNK
  101. CITRIC ACID [Suspect]
     Active Substance: CITRIC ACID MONOHYDRATE
     Dosage: 100 MG, QD
     Dates: start: 2006
  102. AMOXICILLIN. [Suspect]
     Active Substance: AMOXICILLIN
     Dosage: 250 MG, TID (750 MG)
     Dates: start: 20060913
  103. AMOXICILLIN. [Suspect]
     Active Substance: AMOXICILLIN
     Dosage: 1 GRAM, TID
     Route: 042
  104. CEFTRIAXONE. [Suspect]
     Active Substance: CEFTRIAXONE
     Indication: PNEUMONIA
     Dosage: 2 G, QD
  105. PARACETAMOL [Suspect]
     Active Substance: ACETAMINOPHEN
     Indication: PNEUMONIA
     Dosage: UNK
     Route: 065
     Dates: start: 2006
  106. PROPOFOL. [Suspect]
     Active Substance: PROPOFOL
     Indication: ILL-DEFINED DISORDER
  107. NOREPINEPHRINE. [Suspect]
     Active Substance: NOREPINEPHRINE
     Indication: PNEUMONIA
     Dosage: UNK
     Route: 065
     Dates: start: 2006
  108. POTASSIUM CHLORIDE. [Suspect]
     Active Substance: POTASSIUM CHLORIDE
     Dosage: UNK, TID (0.33 DAY)
  109. POTASSIUM CANRENOATE [Suspect]
     Active Substance: CANRENOATE POTASSIUM
     Indication: ILL-DEFINED DISORDER
     Dosage: UNK
  110. ZOTON [Suspect]
     Active Substance: LANSOPRAZOLE
     Indication: ILL-DEFINED DISORDER
     Dosage: 30 MG, QD
     Route: 065
     Dates: start: 2006
  111. ZOTON [Suspect]
     Active Substance: LANSOPRAZOLE
     Dosage: 3 G
     Route: 065
  112. ZOTON [Suspect]
     Active Substance: LANSOPRAZOLE
     Dosage: 30 MILLIGRAM
     Route: 065
  113. SALBUTAMOL [Suspect]
     Active Substance: ALBUTEROL
     Dosage: AS NECESSARY
     Route: 065
     Dates: start: 2006
  114. CHLORPHENIRAMINE MALEATE. [Suspect]
     Active Substance: CHLORPHENIRAMINE MALEATE
     Dosage: 10 MG, Q6H
     Route: 042
     Dates: start: 2006
  115. AQUASEPT [Suspect]
     Active Substance: TRICLOSAN
     Indication: PNEUMONIA
     Dosage: UNK
     Route: 065
  116. SILVER SULPHADIAZINE [Suspect]
     Active Substance: SILVER SULFADIAZINE
     Indication: PNEUMONIA
     Dosage: UNK
     Route: 061
  117. POTASSIUM PHOSPHATE [POTASSIUM PHOSPHATE DIBASIC] [Suspect]
     Active Substance: DIBASIC POTASSIUM PHOSPHATE
     Indication: ILL-DEFINED DISORDER
     Dosage: DAILY DOSE: UNKNOWN
     Route: 065
     Dates: start: 2006
  118. CO AMOXYCLAV [AMOXICILLIN;CLAVULANIC ACID] [Concomitant]
     Dosage: 375 MILLIGRAM, Q8H (DAILY DOSE TEXT: 375MG 3/1DAYS), TID
     Route: 065
     Dates: start: 20060913
  119. TAZOCIN [Concomitant]
     Active Substance: PIPERACILLIN SODIUM\TAZOBACTAM SODIUM
     Dosage: 4.5 GRAM, TID
     Dates: start: 20061009
  120. TAZOCIN [Concomitant]
     Active Substance: PIPERACILLIN SODIUM\TAZOBACTAM SODIUM
     Dosage: 4.5 MG, QID
     Dates: start: 20061004, end: 20061009
  121. CLEXANE [Suspect]
     Active Substance: ENOXAPARIN SODIUM
     Indication: PNEUMONIA
     Dosage: 20 MG, QD
     Route: 058
     Dates: start: 2006
  122. DOBUTAMINE [Suspect]
     Active Substance: DOBUTAMINE HYDROCHLORIDE
     Dosage: UNK
     Route: 065
  123. FUROSEMIDE. [Suspect]
     Active Substance: FUROSEMIDE
     Indication: PNEUMONIA
     Dosage: 40 MG
     Route: 042
  124. FLUCONAZOLE. [Suspect]
     Active Substance: FLUCONAZOLE
     Indication: PNEUMONIA
     Dosage: 20 MILLIGRAM, QD
     Route: 042
  125. FLUCONAZOLE. [Suspect]
     Active Substance: FLUCONAZOLE
     Dosage: 200 MG, QD
  126. LACTULOSE. [Suspect]
     Active Substance: LACTULOSE
     Indication: PNEUMONIA
     Dosage: 10 MILLILITER
     Route: 065
  127. LACTULOSE. [Suspect]
     Active Substance: LACTULOSE
     Dosage: UNK
  128. PARACETAMOL [Suspect]
     Active Substance: ACETAMINOPHEN
     Indication: ILL-DEFINED DISORDER
     Dosage: 50 UNITS/50ML
     Route: 042
     Dates: start: 2006
  129. PROPOFOL. [Suspect]
     Active Substance: PROPOFOL
     Indication: PNEUMONIA
     Dosage: UNK
     Route: 065
     Dates: start: 2006
  130. POTASSIUM CHLORIDE. [Suspect]
     Active Substance: POTASSIUM CHLORIDE
     Dosage: 2 DF, Q8H
  131. SODIUM CHLORIDE. [Suspect]
     Active Substance: SODIUM CHLORIDE
     Dosage: 10 ML
     Route: 042
  132. SODIUM BICARBONATE. [Suspect]
     Active Substance: SODIUM BICARBONATE
     Dosage: 0.9 %
     Route: 042
  133. VITAMIN B [Suspect]
     Active Substance: VITAMIN B
     Indication: ILL-DEFINED DISORDER
     Dosage: UNK
  134. SULFADIAZINE. [Suspect]
     Active Substance: SULFADIAZINE
     Indication: PRODUCT USED FOR UNKNOWN INDICATION
  135. ZOTON [Suspect]
     Active Substance: LANSOPRAZOLE
     Indication: PNEUMONIA
     Dosage: 30 MILLIGRAM
     Route: 065
  136. ALFENTANIL. [Suspect]
     Active Substance: ALFENTANIL
     Indication: ILL-DEFINED DISORDER
     Dosage: UNK
     Route: 065
  137. ALFENTANIL. [Suspect]
     Active Substance: ALFENTANIL
     Dosage: UNK
     Route: 042
  138. CHLORPHENIRAMINE MALEATE. [Suspect]
     Active Substance: CHLORPHENIRAMINE MALEATE
     Indication: ILL-DEFINED DISORDER
     Dosage: 10 MG, QID
     Route: 042
     Dates: start: 2006
  139. HUMAN ACTRAPID [Suspect]
     Active Substance: INSULIN HUMAN
     Dosage: UNK (50 UNITS/50ML)
     Route: 042
  140. NORADRENALINE (NORPINEPHRINE) [Suspect]
     Active Substance: NOREPINEPHRINE
     Indication: ILL-DEFINED DISORDER
     Dosage: UNK
     Route: 065
     Dates: start: 2006
  141. SODIUM HYDROGEN CARBONATE [Suspect]
     Active Substance: SODIUM BICARBONATE
     Indication: PRODUCT USED FOR UNKNOWN INDICATION
     Dosage: 100 ML HOURLY
     Route: 042
  142. THIAMINE. [Suspect]
     Active Substance: THIAMINE
     Indication: PNEUMONIA
     Dosage: 100 MILLIGRAM, QD
     Route: 048
  143. THIAMINE. [Suspect]
     Active Substance: THIAMINE
     Dosage: 100 MILLIGRAM, QD
     Route: 048
     Dates: start: 2006
  144. PANTOPRAZOLE [Concomitant]
     Active Substance: PANTOPRAZOLE
     Indication: ILL-DEFINED DISORDER
     Dosage: DAILY DOSE: 40 MILLIGRAM(S)
     Route: 042
  145. TAZOCIN [Concomitant]
     Active Substance: PIPERACILLIN SODIUM\TAZOBACTAM SODIUM
     Indication: ILL-DEFINED DISORDER
     Dosage: 4.5 MG, QID
     Dates: start: 2006
  146. VANCOMYCIN [Concomitant]
     Active Substance: VANCOMYCIN
     Indication: ILL-DEFINED DISORDER
     Dosage: DAILY DOSE TEXT: 1G 1/1DAYS
     Route: 042
  147. CITRIC ACID [Suspect]
     Active Substance: CITRIC ACID MONOHYDRATE
     Dosage: 100 MG, QD
  148. HYDROCORTISONE. [Suspect]
     Active Substance: HYDROCORTISONE
     Dosage: 100 MILLIGRAM, QD
     Route: 042
     Dates: start: 2006
  149. MUPIROCIN. [Suspect]
     Active Substance: MUPIROCIN
     Indication: ILL-DEFINED DISORDER
     Dosage: 2 G
  150. OMEPRAZOLE. [Suspect]
     Active Substance: OMEPRAZOLE
     Indication: PNEUMONIA
     Dosage: 40 MG,UNK (DAILY DOSE: 40 MILLIGRAM(S))
     Route: 042
  151. POTASSIUM CHLORIDE. [Suspect]
     Active Substance: POTASSIUM CHLORIDE
     Dosage: TID, 40MMOLS/100ML INFUSION
  152. POTASSIUM CHLORIDE. [Suspect]
     Active Substance: POTASSIUM CHLORIDE
     Dosage: UNK, QD
     Dates: start: 2006
  153. SODIUM CHLORIDE. [Suspect]
     Active Substance: SODIUM CHLORIDE
     Indication: PNEUMONIA
     Dosage: UNK
  154. SODIUM BICARBONATE. [Suspect]
     Active Substance: SODIUM BICARBONATE
     Dosage: 100 MILLIGRAM (ADMINISTRATION OVER AN HOUR)
     Route: 042
  155. SODIUM BICARBONATE. [Suspect]
     Active Substance: SODIUM BICARBONATE
     Dosage: 100 MILLIGRAM (ADMINISTRATION OVER AN HOUR)
     Route: 042
     Dates: start: 2006
  156. ALFENTANIL. [Suspect]
     Active Substance: ALFENTANIL
     Indication: PNEUMONIA
     Dosage: UNK
     Route: 042
     Dates: start: 2006
  157. SALBUTAMOL [Suspect]
     Active Substance: ALBUTEROL
     Indication: PNEUMONIA
     Dosage: UNK, PRN
  158. CALCIUM CHLORIDE. [Suspect]
     Active Substance: CALCIUM CHLORIDE
     Indication: PNEUMONIA
     Dosage: UNK
     Route: 065
  159. FRAGMIN [Suspect]
     Active Substance: DALTEPARIN SODIUM
     Indication: ILL-DEFINED DISORDER
     Dosage: 200 IU, QD
     Route: 058
  160. SANDO K [POTASSIUM BICARBONATE;POTASSIUM CHLORIDE] [Suspect]
     Active Substance: POTASSIUM BICARBONATE\POTASSIUM CHLORIDE
     Dosage: 2 DOSAGE FORM, TID
     Route: 061
  161. TINZAPARIN [Suspect]
     Active Substance: TINZAPARIN
     Indication: PNEUMONIA
     Dosage: 3500 UG, QD
     Route: 065
     Dates: start: 2006
  162. TINZAPARIN [Suspect]
     Active Substance: TINZAPARIN
     Dosage: 3500 QD (DAILY DOSE TEXT: 3500 MICROLITERS UNK
     Route: 065
     Dates: start: 2006
  163. ACETYLSALICYLIC ACID [Concomitant]
     Active Substance: ASPIRIN
     Dosage: UNKNOWN/D
     Route: 048
  164. ATROVENT [Concomitant]
     Active Substance: IPRATROPIUM BROMIDE
     Dosage: 1 DF, PRN
  165. ATROVENT [Concomitant]
     Active Substance: IPRATROPIUM BROMIDE
     Dosage: UNK UNK, PRN
     Route: 065
  166. METOCLOPRAMIDE. [Concomitant]
     Active Substance: METOCLOPRAMIDE
     Indication: ILL-DEFINED DISORDER
     Dosage: DAILY DOSE: 10 MILLIGRAM(S)
     Route: 042
  167. TAZOCIN [Concomitant]
     Active Substance: PIPERACILLIN SODIUM\TAZOBACTAM SODIUM
     Dosage: INCREASED TO 4 TIMES DAILY BETWEEN 04/10/2006 AND 09/10/2006
  168. TAZOCIN [Concomitant]
     Active Substance: PIPERACILLIN SODIUM\TAZOBACTAM SODIUM
     Dosage: INCREASED TO 4 TIMES DAILY BETWEEN 04/10/2006 AND 09/10/2006
  169. ZOPICLONE [Concomitant]
     Active Substance: ZOPICLONE
     Indication: ILL-DEFINED DISORDER
     Dosage: DAILY DOSE: UNKNOWN
     Route: 048

REACTIONS (1)
  - Toxic epidermal necrolysis [Unknown]

NARRATIVE: CASE EVENT DATE: 2006
